FAERS Safety Report 9516236 (Version 2)
Quarter: 2013Q4

REPORT INFORMATION
  Report Type: Spontaneous
  Country: GB (occurrence: GB)
  Receive Date: 20130911
  Receipt Date: 20131205
  Transmission Date: 20140711
  Serious: Yes (Disabling, Other)
  Sender: FDA-Public Use
  Company Number: PHHY2013GB097512

PATIENT
  Age: 72 Year
  Sex: Female
  Weight: 56.5 kg

DRUGS (4)
  1. SIMVASTATIN [Suspect]
     Indication: HYPERLIPIDAEMIA
     Dosage: 40 MG, UNK
     Route: 048
     Dates: start: 20070316, end: 20130822
  2. MEBEVERINE [Concomitant]
  3. CO-DYDRAMOL [Concomitant]
  4. FOLIC ACID [Concomitant]

REACTIONS (2)
  - Abnormal loss of weight [Recovered/Resolved]
  - Liver function test abnormal [Recovered/Resolved]
